FAERS Safety Report 14395129 (Version 1)
Quarter: 2018Q1

REPORT INFORMATION
  Report Type: Spontaneous
  Country: US (occurrence: US)
  Receive Date: 20180116
  Receipt Date: 20180116
  Transmission Date: 20180509
  Serious: Yes (Hospitalization)
  Sender: FDA-Public Use
  Company Number: US-STANDARD HOMEOPATHIC COMPANY-2040114

PATIENT
  Age: 77 Year
  Sex: Female
  Weight: 99.55 kg

DRUGS (1)
  1. HYLANDS LEG CRAMPS [Suspect]
     Active Substance: HOMEOPATHICS
     Indication: MUSCULOSKELETAL STIFFNESS
     Route: 048
     Dates: start: 2013, end: 20160702

REACTIONS (2)
  - Heart rate increased [None]
  - Blood pressure decreased [None]

NARRATIVE: CASE EVENT DATE: 201701
